FAERS Safety Report 9651773 (Version 1)
Quarter: 2013Q4

REPORT INFORMATION
  Report Type: Spontaneous
  Country: US (occurrence: US)
  Receive Date: 20131029
  Receipt Date: 20131029
  Transmission Date: 20140711
  Serious: No
  Sender: FDA-Public Use
  Company Number: US-ENDO PHARMACEUTICALS INC.-LACT20110016

PATIENT
  Age: 33 Year
  Sex: Male
  Weight: 79 kg

DRUGS (2)
  1. LACTULOSE ORAL SOLUTION [Suspect]
     Indication: FUNCTIONAL GASTROINTESTINAL DISORDER
     Route: 048
     Dates: start: 20111109
  2. NITROGLYCERIN [Concomitant]
     Indication: CARDIAC DISORDER
     Route: 048

REACTIONS (3)
  - Rectal injury [Not Recovered/Not Resolved]
  - Faeces hard [Not Recovered/Not Resolved]
  - Drug ineffective [Not Recovered/Not Resolved]
